FAERS Safety Report 9695017 (Version 2)
Quarter: 2013Q4

REPORT INFORMATION
  Report Type: Report from Study
  Country: BR (occurrence: BR)
  Receive Date: 20131119
  Receipt Date: 20131203
  Transmission Date: 20140711
  Serious: No
  Sender: FDA-Public Use
  Company Number: BR-BAYER-2013-137390

PATIENT
  Age: 82 Year
  Sex: Male
  Weight: 51 kg

DRUGS (1)
  1. NEXAVAR [Suspect]
     Indication: HEPATIC CANCER
     Dosage: 1 DF, BID (1 TABLET IN THE MORNING AND 1 TABLET IN THE EVENING)
     Route: 048
     Dates: start: 20131101

REACTIONS (3)
  - Vomiting [Not Recovered/Not Resolved]
  - Retching [Recovering/Resolving]
  - Blood pressure increased [Recovered/Resolved]
